FAERS Safety Report 4427379-9 (Version None)
Quarter: 2004Q3

REPORT INFORMATION
  Report Type: 
  Country: None (occurrence: None)
  Receive Date: 20040816
  Receipt Date: 20040816
  Transmission Date: 20050211
  Serious: Yes (Other)
  Sender: FDA-Public Use
  Company Number: None

PATIENT
  Age: 70 Year

DRUGS (5)
  1. LISINOPRIL -5 MG MFR: MYLAN [Suspect]
     Indication: HYPERTENSION
     Dosage: 5 MG - ONCE/DAY
     Dates: start: 20040110, end: 20040125
  2. DILANTIN [Concomitant]
  3. PRAVACHOL [Concomitant]
  4. HCT [Concomitant]
  5. ASPIRIN [Concomitant]

REACTIONS (3)
  - DYSPNOEA [None]
  - FATIGUE [None]
  - VISION BLURRED [None]
